APPROVED DRUG PRODUCT: PROMETHAZINE HYDROCHLORIDE
Active Ingredient: PROMETHAZINE HYDROCHLORIDE
Strength: 50MG/ML
Dosage Form/Route: INJECTABLE;INJECTION
Application: A040737 | Product #002 | TE Code: AP
Applicant: XGEN PHARMACEUTICALS DJB INC
Approved: Apr 24, 2008 | RLD: No | RS: No | Type: RX